FAERS Safety Report 5086108-9 (Version None)
Quarter: 2006Q3

REPORT INFORMATION
  Report Type: 
  Country: None (occurrence: None)
  Receive Date: 20060818
  Receipt Date: 20060804
  Transmission Date: 20061208
  Serious: Yes (Life-Threatening, Hospitalization, Other)
  Sender: FDA-Public Use
  Company Number: JP200608000603

PATIENT
  Age: 51 Year
  Sex: Female

DRUGS (6)
  1. ZYPREXA [Suspect]
     Indication: SCHIZOPHRENIA
     Dosage: 20 MG, DAILY (1/D), ORAL
     Route: 048
     Dates: start: 20050701, end: 20060613
  2. RISPERDAL [Concomitant]
  3. AKINETON [Concomitant]
  4. ARTANE [Concomitant]
  5. PAXIL [Concomitant]
  6. ALPRAZOLAM [Concomitant]

REACTIONS (6)
  - APALLIC SYNDROME [None]
  - CARDIO-RESPIRATORY ARREST [None]
  - INAPPROPRIATE ANTIDIURETIC HORMONE SECRETION [None]
  - NERVOUS SYSTEM DISORDER [None]
  - NEUROLEPTIC MALIGNANT SYNDROME [None]
  - RESPIRATORY DEPRESSION [None]
